FAERS Safety Report 24137104 (Version 1)
Quarter: 2024Q3

REPORT INFORMATION
  Report Type: Spontaneous
  Country: CA (occurrence: CA)
  Receive Date: 20240725
  Receipt Date: 20240725
  Transmission Date: 20241017
  Serious: Yes (Other)
  Sender: ABBVIE
  Company Number: CA-ABBVIE-5852074

PATIENT
  Age: 56 Year
  Sex: Female

DRUGS (2)
  1. MESALAMINE [Suspect]
     Active Substance: MESALAMINE
     Indication: Product used for unknown indication
     Route: 065
  2. RENFLEXIS [Suspect]
     Active Substance: INFLIXIMAB-ABDA
     Indication: Crohn^s disease
     Dosage: SINGLE USE VIAL
     Route: 042

REACTIONS (3)
  - Frequent bowel movements [Not Recovered/Not Resolved]
  - Colitis [Not Recovered/Not Resolved]
  - Haematochezia [Not Recovered/Not Resolved]
